FAERS Safety Report 8603320-X (Version None)
Quarter: 2012Q3

REPORT INFORMATION
  Report Type: 
  Country: None (occurrence: None)
  Receive Date: 20120817
  Receipt Date: 20120814
  Transmission Date: 20120928
  Serious: Yes (Life-Threatening, Hospitalization, Disabling, Other)
  Sender: FDA-Public Use
  Company Number: PHHY2012DE061328

PATIENT
  Age: 20 Year
  Sex: Female

DRUGS (1)
  1. GILENYA [Suspect]
     Indication: MULTIPLE SCLEROSIS
     Dosage: 0.5 MG, QD
     Route: 048
     Dates: start: 20120515, end: 20120619

REACTIONS (5)
  - CONVULSION [None]
  - CD4 LYMPHOCYTES DECREASED [None]
  - CENTRAL NERVOUS SYSTEM LESION [None]
  - QUADRIPARESIS [None]
  - QUADRIPLEGIA [None]
